FAERS Safety Report 24225874 (Version 1)
Quarter: 2024Q3

REPORT INFORMATION
  Report Type: Spontaneous
  Country: NL (occurrence: NL)
  Receive Date: 20240820
  Receipt Date: 20240820
  Transmission Date: 20241017
  Serious: Yes (Other)
  Sender: TEVA
  Company Number: None

PATIENT
  Age: 64 Year
  Sex: Male
  Weight: 78 kg

DRUGS (1)
  1. AMLODIPINE [Suspect]
     Active Substance: AMLODIPINE BESYLATE
     Indication: Hypertension
     Dosage: 1X PER DAY 1 STUKS, TABLET   5MG / BRAND NAME NOT SPECIFIED
     Route: 065
     Dates: start: 20230822

REACTIONS (2)
  - Erectile dysfunction [Not Recovered/Not Resolved]
  - Urine flow decreased [Not Recovered/Not Resolved]
